FAERS Safety Report 19887600 (Version 2)
Quarter: 2021Q4

REPORT INFORMATION
  Report Type: Spontaneous
  Country: BR (occurrence: BR)
  Receive Date: 20210928
  Receipt Date: 20211008
  Transmission Date: 20220304
  Serious: Yes (Other)
  Sender: FDA-Public Use
  Company Number: BR-NOVOPROD-850349

PATIENT
  Age: 75 Year
  Sex: Male
  Weight: 66 kg

DRUGS (5)
  1. INSULIN HUMAN [Suspect]
     Active Substance: INSULIN HUMAN
     Indication: Diabetes mellitus
     Dosage: 24 IU IN THE MORNING AND 14 IU IN THE EVENING +
     Route: 065
  2. INSULIN HUMAN [Suspect]
     Active Substance: INSULIN HUMAN
     Dosage: 13 + 06 + 06 IU
     Route: 065
  3. INSULIN HUMAN [Suspect]
     Active Substance: INSULIN HUMAN
     Dosage: (24 +08 + 18 IU)
     Route: 065
  4. LOSARTAN [Concomitant]
     Active Substance: LOSARTAN
     Indication: Product used for unknown indication
     Dosage: 50 MG, QD
     Route: 065
  5. ATORVASTATIN [Concomitant]
     Active Substance: ATORVASTATIN
     Indication: Product used for unknown indication
     Dosage: 800 MG, QD
     Route: 065

REACTIONS (7)
  - Plasma cell myeloma [Unknown]
  - Hypoglycaemia [Unknown]
  - Ischaemic stroke [Recovered/Resolved]
  - Proteinuria [Unknown]
  - Weight decreased [Unknown]
  - Hyperglycaemia [Unknown]
  - Hypoglycaemia [Unknown]

NARRATIVE: CASE EVENT DATE: 20170101
